FAERS Safety Report 11114854 (Version 1)
Quarter: 2015Q2

REPORT INFORMATION
  Report Type: Spontaneous
  Country: FR (occurrence: FR)
  Receive Date: 20150515
  Receipt Date: 20150515
  Transmission Date: 20150821
  Serious: Yes (Other)
  Sender: FDA-Public Use
  Company Number: FR-SUN PHARMACEUTICAL INDUSTRIES LTD-2015SUN01186

PATIENT
  Age: 83 Year
  Sex: Male

DRUGS (3)
  1. CLOPIDOGREL [Concomitant]
     Active Substance: CLOPIDOGREL BISULFATE
  2. GEMCITABINE [Suspect]
     Active Substance: GEMCITABINE\GEMCITABINE HYDROCHLORIDE
     Indication: PANCREATIC CARCINOMA METASTATIC
     Dosage: 1000 MG/M2, OVER A 30 MIN INTRAVENOUS INFUSION ON DAYS 1, 8, AND 15 OF A 28 DAY-CYCLE
     Route: 042
  3. FINASTERIDE. [Concomitant]
     Active Substance: FINASTERIDE

REACTIONS (2)
  - Pulmonary hypertension [Recovering/Resolving]
  - Pulmonary veno-occlusive disease [Recovering/Resolving]
